FAERS Safety Report 9535824 (Version 1)
Quarter: 2013Q2

REPORT INFORMATION
  Report Type: Spontaneous
  Country: US (occurrence: None)
  Receive Date: 20130507
  Receipt Date: 20130507
  Transmission Date: 20140414
  Serious: Yes (Other)
  Sender: FDA-Public Use
  Company Number: PHEH2012US006739

PATIENT
  Age: 36 Year
  Sex: Female

DRUGS (1)
  1. TASIGNA (AMN107) CAPSULE [Suspect]
     Indication: CHRONIC MYELOID LEUKAEMIA
     Dosage: 300 MG, BID, ORAL
     Route: 048

REACTIONS (3)
  - Pancreatitis acute [None]
  - Abdominal pain [None]
  - Lipase increased [None]
